FAERS Safety Report 4647499-3 (Version None)
Quarter: 2005Q2

REPORT INFORMATION
  Report Type: 
  Country: None (occurrence: None)
  Receive Date: 20050428
  Receipt Date: 20031106
  Transmission Date: 20051028
  Serious: Yes (Hospitalization)
  Sender: FDA-Public Use
  Company Number: IT-ROCHE-350877

PATIENT
  Age: 48 Year
  Sex: Male
  Weight: 80 kg

DRUGS (2)
  1. PEG-INTERFERON ALFA 2A (RO 25-8310) [Suspect]
     Route: 058
     Dates: start: 20020410, end: 20021223
  2. RIBAVIRIN [Suspect]
     Route: 048
     Dates: start: 20020410, end: 20021223

REACTIONS (2)
  - ARRHYTHMIA [None]
  - SYNCOPE [None]
